FAERS Safety Report 4820542-4 (Version None)
Quarter: 2005Q4

REPORT INFORMATION
  Report Type: 
  Country: None (occurrence: None)
  Receive Date: 20051014
  Receipt Date: 20050903
  Transmission Date: 20060501
  Serious: No
  Sender: FDA-Public Use
  Company Number: 2005SP002680

PATIENT
  Age: 55 Year
  Sex: Female
  Weight: 68.0396 kg

DRUGS (5)
  1. LUNESTA [Suspect]
     Indication: INSOMNIA
     Dosage: 3 MG; HS; ORAL
     Route: 048
     Dates: start: 20050902, end: 20050906
  2. PREVACID [Concomitant]
  3. VALTREX [Concomitant]
  4. ATIVAN [Concomitant]
  5. EFFEXOR [Concomitant]

REACTIONS (1)
  - DYSGEUSIA [None]
